FAERS Safety Report 6786272-7 (Version None)
Quarter: 2010Q2

REPORT INFORMATION
  Report Type: 
  Country: None (occurrence: None)
  Receive Date: 20100623
  Receipt Date: 20100615
  Transmission Date: 20101027
  Serious: Yes (Hospitalization, Other)
  Sender: FDA-Public Use
  Company Number: US-ROCHE-710341

PATIENT
  Sex: Male

DRUGS (3)
  1. ACCUTANE [Suspect]
     Route: 048
     Dates: start: 20070602, end: 20070707
  2. ACCUTANE [Suspect]
     Route: 048
     Dates: start: 20071201, end: 20080225
  3. SOTRET [Suspect]
     Route: 048
     Dates: start: 20070707, end: 20071201

REACTIONS (2)
  - SUICIDAL IDEATION [None]
  - SUICIDE ATTEMPT [None]
